FAERS Safety Report 23427848 (Version 1)
Quarter: 2024Q1

REPORT INFORMATION
  Report Type: Spontaneous
  Country: AU (occurrence: AU)
  Receive Date: 20240122
  Receipt Date: 20240122
  Transmission Date: 20240409
  Serious: Yes (Hospitalization)
  Sender: FDA-Public Use
  Company Number: AU-BoehringerIngelheim-2024-BI-003488

PATIENT
  Age: 57 Year
  Sex: Male

DRUGS (3)
  1. EMPAGLIFLOZIN\METFORMIN HYDROCHLORIDE [Suspect]
     Active Substance: EMPAGLIFLOZIN\METFORMIN HYDROCHLORIDE
     Indication: Product used for unknown indication
  2. CRESTOR [Concomitant]
     Active Substance: ROSUVASTATIN CALCIUM
  3. Osteo Vit D [Concomitant]
     Indication: Product used for unknown indication

REACTIONS (1)
  - Inguinal hernia [Unknown]
